FAERS Safety Report 4927111-6 (Version None)
Quarter: 2006Q1

REPORT INFORMATION
  Report Type: 
  Country: None (occurrence: None)
  Receive Date: 20060222
  Receipt Date: 20060207
  Transmission Date: 20060701
  Serious: Yes (Hospitalization)
  Sender: FDA-Public Use
  Company Number: SUS1-2006-00138

PATIENT
  Sex: 0

DRUGS (1)
  1. ADDERALL XR 30 [Suspect]
     Indication: ATTENTION DEFICIT/HYPERACTIVITY DISORDER
     Dates: start: 20050101

REACTIONS (3)
  - CONFUSIONAL STATE [None]
  - DEPRESSION SUICIDAL [None]
  - EMOTIONAL DISTRESS [None]
